FAERS Safety Report 5881292-9 (Version None)
Quarter: 2008Q3

REPORT INFORMATION
  Report Type: 
  Country: None (occurrence: None)
  Receive Date: 20080910
  Receipt Date: 20080826
  Transmission Date: 20090109
  Serious: Yes (Hospitalization)
  Sender: FDA-Public Use
  Company Number: 2008BI003402

PATIENT
  Age: 31 Year
  Sex: Female

DRUGS (1)
  1. TYSABRI [Suspect]
     Indication: RELAPSING-REMITTING MULTIPLE SCLEROSIS
     Dosage: 300 MG/QM; IV
     Route: 042
     Dates: start: 20071107, end: 20080206

REACTIONS (13)
  - ALLERGY TO METALS [None]
  - CATHETER RELATED COMPLICATION [None]
  - DIZZINESS [None]
  - FOOD ALLERGY [None]
  - GENERAL PHYSICAL HEALTH DETERIORATION [None]
  - INFUSION SITE HYPERSENSITIVITY [None]
  - LYMPHOCYTE COUNT INCREASED [None]
  - MULTIPLE SCLEROSIS RELAPSE [None]
  - NAUSEA [None]
  - OPTIC NEURITIS [None]
  - POLYDIPSIA [None]
  - POLYURIA [None]
  - PYREXIA [None]
